FAERS Safety Report 25058592 (Version 1)
Quarter: 2025Q1

REPORT INFORMATION
  Report Type: Report from Study
  Country: US (occurrence: US)
  Receive Date: 20250310
  Receipt Date: 20250310
  Transmission Date: 20250408
  Serious: Yes (Other)
  Sender: TAKEDA
  Company Number: US-TAKEDA-2025TUS015744

PATIENT
  Sex: Female
  Weight: 48 kg

DRUGS (3)
  1. VEDOLIZUMAB [Suspect]
     Active Substance: VEDOLIZUMAB
     Indication: Crohn^s disease
  2. VEDOLIZUMAB [Suspect]
     Active Substance: VEDOLIZUMAB
     Indication: Crohn^s disease
     Dosage: 108 MILLIGRAM, Q2WEEKS
  3. VEDOLIZUMAB [Suspect]
     Active Substance: VEDOLIZUMAB

REACTIONS (14)
  - Mental impairment [Unknown]
  - Confusional state [Unknown]
  - Memory impairment [Unknown]
  - Depression [Unknown]
  - Abnormal behaviour [Unknown]
  - Dysphemia [Unknown]
  - Balance disorder [Unknown]
  - Visual impairment [Unknown]
  - Inappropriate schedule of product administration [Unknown]
  - Device malfunction [Unknown]
  - Product availability issue [Unknown]
  - Device leakage [Unknown]
  - Product dose omission issue [Unknown]
  - Device defective [Unknown]
